FAERS Safety Report 19884758 (Version 1)
Quarter: 2021Q3

REPORT INFORMATION
  Report Type: Spontaneous
  Country: US (occurrence: US)
  Receive Date: 20210923
  Receipt Date: 20210923
  Transmission Date: 20211014
  Serious: Yes (Death)
  Sender: FDA-Public Use
  Company Number: None

PATIENT
  Age: 77 Year
  Sex: Male
  Weight: 94 kg

DRUGS (1)
  1. PACERONE [Suspect]
     Active Substance: AMIODARONE HYDROCHLORIDE
     Indication: CARDIAC FAILURE CONGESTIVE
     Route: 048
     Dates: start: 20190611, end: 20210414

REACTIONS (6)
  - Confusional state [None]
  - Hepatic enzyme increased [None]
  - International normalised ratio abnormal [None]
  - Haemorrhage [None]
  - Respiratory depression [None]
  - Hallucination [None]

NARRATIVE: CASE EVENT DATE: 20210414
